FAERS Safety Report 4618342-3 (Version None)
Quarter: 2005Q1

REPORT INFORMATION
  Report Type: 
  Country: None (occurrence: None)
  Receive Date: 20050324
  Receipt Date: 20050308
  Transmission Date: 20050727
  Serious: Yes (Other)
  Sender: FDA-Public Use
  Company Number: CA_050307832

PATIENT
  Age: 1 Day

DRUGS (1)
  1. ZYPREXA [Suspect]

REACTIONS (6)
  - CLEFT LIP [None]
  - CONGENITAL ANOMALY [None]
  - DRUG EXPOSURE DURING PREGNANCY [None]
  - ENCEPHALOCELE [None]
  - MULTIPLE CONGENITAL ABNORMALITIES [None]
  - NEURAL TUBE DEFECT [None]
